FAERS Safety Report 18795744 (Version 1)
Quarter: 2021Q1

REPORT INFORMATION
  Report Type: Spontaneous
  Country: US (occurrence: US)
  Receive Date: 20210127
  Receipt Date: 20210127
  Transmission Date: 20210419
  Serious: Yes (Other)
  Sender: FDA-Public Use
  Company Number: US-PFIZER INC-2021063623

PATIENT
  Age: 55 Year
  Sex: Female

DRUGS (2)
  1. XELJANZ [Suspect]
     Active Substance: TOFACITINIB CITRATE
     Indication: PSORIATIC ARTHROPATHY
     Dosage: 5 MG, 2X/DAY (2 TABLETS WERE A BIT TOO MUCH)
  2. XELJANZ [Suspect]
     Active Substance: TOFACITINIB CITRATE
     Indication: AXIAL SPONDYLOARTHRITIS
     Dosage: 5 MG, 1X/DAY

REACTIONS (6)
  - Drug ineffective [Unknown]
  - Tendonitis [Unknown]
  - Rash [Unknown]
  - Intentional product use issue [Unknown]
  - Autoimmune disorder [Unknown]
  - Nasopharyngitis [Unknown]
